FAERS Safety Report 4302085-X (Version None)
Quarter: 2004Q1

REPORT INFORMATION
  Report Type: 
  Country: None (occurrence: None)
  Receive Date: 20040220
  Receipt Date: 20040217
  Transmission Date: 20041129
  Serious: Yes (Life-Threatening)
  Sender: FDA-Public Use
  Company Number: 200410072BYL

PATIENT
  Age: 75 Year
  Sex: Male
  Weight: 55 kg

DRUGS (5)
  1. ASPIRIN [Suspect]
     Dosage: 300 MG, TOTAL DAILY, ORAL
     Route: 048
     Dates: start: 20031120, end: 20031228
  2. PANALDINE [Concomitant]
  3. RENIVACE [Concomitant]
  4. GASTER [Concomitant]
  5. KAMAG G [Concomitant]

REACTIONS (1)
  - LIVER DISORDER [None]
